FAERS Safety Report 13535201 (Version 1)
Quarter: 2017Q2

REPORT INFORMATION
  Report Type: Spontaneous
  Country: US (occurrence: US)
  Receive Date: 20170510
  Receipt Date: 20170510
  Transmission Date: 20170830
  Serious: Yes (Disabling, Other)
  Sender: FDA-Public Use
  Company Number: None

PATIENT
  Age: 71 Year
  Sex: Female
  Weight: 54.9 kg

DRUGS (3)
  1. TRAMADOL HCL [Suspect]
     Active Substance: TRAMADOL HYDROCHLORIDE
     Indication: GASTROOESOPHAGEAL REFLUX DISEASE
     Dosage: ?          QUANTITY:180 TABLET(S);?
     Route: 048
  2. TRAMADOL HCL [Suspect]
     Active Substance: TRAMADOL HYDROCHLORIDE
     Indication: PAIN
     Dosage: ?          QUANTITY:180 TABLET(S);?
     Route: 048
  3. MECLIZINE [Concomitant]
     Active Substance: MECLIZINE HYDROCHLORIDE

REACTIONS (8)
  - Blood pressure increased [None]
  - Oesophageal pain [None]
  - Throat irritation [None]
  - Withdrawal syndrome [None]
  - Drug use disorder [None]
  - Depression [None]
  - Neuralgia [None]
  - Suicidal ideation [None]

NARRATIVE: CASE EVENT DATE: 20161231
